FAERS Safety Report 13151121 (Version 2)
Quarter: 2017Q2

REPORT INFORMATION
  Report Type: Spontaneous
  Country: US (occurrence: US)
  Receive Date: 20170125
  Receipt Date: 20170427
  Transmission Date: 20170830
  Serious: No
  Sender: FDA-Public Use
  Company Number: US-TEVA-726014ACC

PATIENT
  Age: 33 Year
  Sex: Female
  Weight: 72.64 kg

DRUGS (2)
  1. PARAGARD T 380A [Suspect]
     Active Substance: COPPER
     Indication: CONTRACEPTION
     Dates: start: 20151001, end: 20161229
  2. PARAGARD T 380A [Suspect]
     Active Substance: COPPER
     Dates: start: 20170203

REACTIONS (6)
  - Menstruation irregular [Recovered/Resolved]
  - Bacterial vaginosis [Unknown]
  - Vaginal odour [Unknown]
  - Vulvovaginal pruritus [Unknown]
  - Vaginal discharge [Recovered/Resolved]
  - Device expulsion [Recovered/Resolved]

NARRATIVE: CASE EVENT DATE: 20161201
